FAERS Safety Report 14689851 (Version 1)
Quarter: 2018Q1

REPORT INFORMATION
  Report Type: Spontaneous
  Country: US (occurrence: US)
  Receive Date: 20180328
  Receipt Date: 20180328
  Transmission Date: 20180509
  Serious: No
  Sender: FDA-Public Use
  Company Number: US-SMITH AND NEPHEW, INC-2017SMT00555

PATIENT
  Age: 78 Year
  Sex: Female
  Weight: 45.35 kg

DRUGS (3)
  1. COLLAGENASE SANTYL [Suspect]
     Active Substance: COLLAGENASE CLOSTRIDIUM HISTOLYTICUM
     Indication: DECUBITUS ULCER
     Dosage: EVERY 72 HOURS
     Route: 061
     Dates: start: 201710, end: 201710
  2. SINEMET [Concomitant]
     Active Substance: CARBIDOPA\LEVODOPA
  3. COLLAGENASE SANTYL [Suspect]
     Active Substance: COLLAGENASE CLOSTRIDIUM HISTOLYTICUM
     Dosage: EVERY 48 HOURS
     Route: 061
     Dates: start: 201710

REACTIONS (2)
  - Wound secretion [Unknown]
  - Wound complication [Unknown]

NARRATIVE: CASE EVENT DATE: 201710
